FAERS Safety Report 7443213-7 (Version None)
Quarter: 2011Q2

REPORT INFORMATION
  Report Type: 
  Country: None (occurrence: None)
  Receive Date: 20110428
  Receipt Date: 20110425
  Transmission Date: 20111010
  Serious: Yes (Death)
  Sender: FDA-Public Use
  Company Number: B0712812A

PATIENT
  Sex: Female
  Weight: 48 kg

DRUGS (24)
  1. CYCLOSPORINE [Suspect]
     Indication: IMMUNOSUPPRESSION
     Dosage: 67.5MG PER DAY
     Route: 065
     Dates: start: 20020204
  2. FUTHAN [Suspect]
     Dosage: 200MG PER DAY
     Route: 042
     Dates: start: 20020210
  3. LASTET [Concomitant]
     Indication: ALLOGENIC BONE MARROW TRANSPLANTATION THERAPY
     Dosage: 500MG PER DAY
     Route: 042
     Dates: start: 20020117, end: 20020118
  4. FUNGIZONE [Concomitant]
     Dosage: 12ML PER DAY
     Route: 048
     Dates: start: 20010821
  5. CRAVIT [Concomitant]
     Dosage: 300MG PER DAY
     Route: 048
     Dates: start: 20020117
  6. ALKERAN [Suspect]
     Indication: ALLOGENIC BONE MARROW TRANSPLANTATION THERAPY
     Dosage: 200MG PER DAY
     Route: 042
     Dates: start: 20020122, end: 20020122
  7. NEU-UP [Concomitant]
     Route: 042
     Dates: start: 20020207, end: 20020212
  8. URSO 250 [Concomitant]
     Dosage: 600MG PER DAY
     Route: 048
     Dates: start: 20010920
  9. CELLCEPT [Concomitant]
     Dosage: 1000MG PER DAY
     Route: 048
     Dates: start: 20011004
  10. ISONIAZID [Concomitant]
     Dosage: 400MG PER DAY
     Route: 048
     Dates: start: 20020117
  11. ALLOPURINOL [Concomitant]
     Dosage: 300MG PER DAY
     Route: 048
     Dates: start: 20020117
  12. CYCLOSPORINE [Suspect]
     Route: 065
     Dates: end: 20020212
  13. PREDONINE [Concomitant]
     Dosage: 20MG PER DAY
     Route: 048
     Dates: start: 20011202
  14. BAKTAR [Concomitant]
     Dosage: 1IUAX PER DAY
     Route: 048
     Dates: start: 20020203
  15. MIRACLID [Suspect]
     Dosage: 100IU3 PER DAY
     Route: 042
     Dates: start: 20020204
  16. GANCICLOVIR [Suspect]
     Dosage: 460MG PER DAY
     Route: 042
     Dates: start: 20020203
  17. VANCOMYCIN [Concomitant]
     Route: 042
     Dates: start: 20020212, end: 20020212
  18. DIFLUCAN [Concomitant]
     Dosage: 400MG PER DAY
     Route: 042
     Dates: start: 20020131
  19. CYMERIN [Concomitant]
     Indication: ALLOGENIC BONE MARROW TRANSPLANTATION THERAPY
     Dosage: 300MG PER DAY
     Route: 042
     Dates: start: 20020119, end: 20020119
  20. NOVANTRONE [Concomitant]
     Indication: ALLOGENIC BONE MARROW TRANSPLANTATION THERAPY
     Dosage: 10MG PER DAY
     Route: 042
     Dates: start: 20020119, end: 20020120
  21. ZOVIRAX [Concomitant]
     Dosage: 1000MG PER DAY
     Route: 048
     Dates: start: 20020117
  22. VANCOMYCIN [Concomitant]
     Dosage: 1G PER DAY
     Route: 042
     Dates: start: 20020131, end: 20020202
  23. MEROPENEM [Suspect]
     Dosage: 2G PER DAY
     Route: 042
     Dates: start: 20020129
  24. SELBEX [Concomitant]
     Dosage: 150MG PER DAY
     Route: 048
     Dates: start: 20010925

REACTIONS (1)
  - BRAIN STEM HAEMORRHAGE [None]
